FAERS Safety Report 10367343 (Version 1)
Quarter: 2014Q3

REPORT INFORMATION
  Report Type: Spontaneous
  Country: GB (occurrence: None)
  Receive Date: 20140805
  Receipt Date: 20140805
  Transmission Date: 20150326
  Serious: Yes (Death, Hospitalization)
  Sender: FDA-Public Use
  Company Number: FK201403107

PATIENT
  Age: 30 Year
  Sex: Female

DRUGS (5)
  1. DAUNORUBICIN [Suspect]
     Active Substance: DAUNORUBICIN
     Indication: ACUTE MYELOID LEUKAEMIA
     Dates: start: 20140212, end: 20140702
  2. FLUDARABINE PHOSPHATE. [Suspect]
     Active Substance: FLUDARABINE PHOSPHATE
     Indication: ACUTE MYELOID LEUKAEMIA
     Dates: start: 20140212, end: 20140702
  3. IDARUBICIN [Suspect]
     Active Substance: IDARUBICIN
     Indication: ACUTE MYELOID LEUKAEMIA
     Dates: start: 20140212, end: 20140702
  4. CYTARABINE. [Suspect]
     Active Substance: CYTARABINE
     Indication: ACUTE MYELOID LEUKAEMIA
     Dates: start: 20140212, end: 20140702
  5. CLOFARABINE [Suspect]
     Active Substance: CLOFARABINE
     Indication: ACUTE MYELOID LEUKAEMIA
     Dates: start: 20140212, end: 20140702

REACTIONS (3)
  - Tuberculosis [None]
  - Renal failure acute [None]
  - Acute myeloid leukaemia [None]

NARRATIVE: CASE EVENT DATE: 20140706
